FAERS Safety Report 8539813-3 (Version None)
Quarter: 2012Q3

REPORT INFORMATION
  Report Type: 
  Country: None (occurrence: None)
  Receive Date: 20120726
  Receipt Date: 20110408
  Transmission Date: 20120928
  Serious: No
  Sender: FDA-Public Use
  Company Number: US-ASTRAZENECA-2011SE20263

PATIENT
  Age: 63 Year
  Sex: Female
  Weight: 75.7 kg

DRUGS (16)
  1. XANAX [Concomitant]
  2. CELEBREX [Concomitant]
  3. SEROQUEL [Suspect]
     Indication: SLEEP DISORDER
     Route: 048
  4. SABELLA [Concomitant]
  5. VITAMIN B COMPLEX CAP [Concomitant]
  6. FLEXERIL [Concomitant]
  7. OXYCONTIN [Concomitant]
  8. OXYCODONE HCL AND ACETAMINOPHEN [Concomitant]
  9. LIPITOR [Concomitant]
  10. SYNTHROID [Concomitant]
  11. MACRODANTIN [Concomitant]
  12. FISH OIL [Concomitant]
  13. MULTI-VITAMIN [Concomitant]
  14. CARDURA [Concomitant]
  15. GLUCOSAMINE [Concomitant]
  16. CALCIUM [Concomitant]

REACTIONS (3)
  - OFF LABEL USE [None]
  - WEIGHT INCREASED [None]
  - INCORRECT DOSE ADMINISTERED [None]
